FAERS Safety Report 5119673-3 (Version None)
Quarter: 2006Q4

REPORT INFORMATION
  Report Type: 
  Country: None (occurrence: None)
  Receive Date: 20061003
  Receipt Date: 20060927
  Transmission Date: 20070319
  Serious: Yes (Hospitalization)
  Sender: FDA-Public Use
  Company Number: JP-ROCHE-464998

PATIENT
  Age: 60 Year
  Sex: Female

DRUGS (7)
  1. DENOSINE IV [Suspect]
     Indication: CYTOMEGALOVIRUS INFECTION
     Dosage: ROUTE REPORTED AS INTRAVENOUS DRIP.
     Route: 042
     Dates: start: 20060818, end: 20060825
  2. OMEPRAZOLE [Concomitant]
     Route: 048
  3. BACTRIM [Concomitant]
     Route: 048
  4. HALIZON [Concomitant]
     Route: 048
  5. DIOVAN [Concomitant]
     Route: 048
  6. PREDONINE [Concomitant]
     Route: 048
  7. ALLELOCK [Concomitant]
     Route: 048

REACTIONS (1)
  - BONE MARROW FAILURE [None]
